FAERS Safety Report 11409826 (Version 7)
Quarter: 2016Q1

REPORT INFORMATION
  Report Type: Spontaneous
  Country: US (occurrence: US)
  Receive Date: 20150824
  Receipt Date: 20160131
  Transmission Date: 20160525
  Serious: Yes (Other)
  Sender: FDA-Public Use
  Company Number: PHEH2015US015914

PATIENT
  Sex: Male

DRUGS (6)
  1. STRATENE [Suspect]
     Active Substance: CETIEDIL
     Indication: PRODUCT USED FOR UNKNOWN INDICATION
     Route: 065
  2. FOCALIN XR [Suspect]
     Active Substance: DEXMETHYLPHENIDATE HYDROCHLORIDE
     Dosage: 10 MG, QD
     Route: 048
  3. INTUNIV [Suspect]
     Active Substance: GUANFACINE HYDROCHLORIDE
     Indication: PRODUCT USED FOR UNKNOWN INDICATION
     Route: 065
  4. FOCALIN XR [Suspect]
     Active Substance: DEXMETHYLPHENIDATE HYDROCHLORIDE
     Dosage: 10 MG, QD
     Route: 048
  5. FOCALIN XR [Suspect]
     Active Substance: DEXMETHYLPHENIDATE HYDROCHLORIDE
     Indication: ATTENTION DEFICIT/HYPERACTIVITY DISORDER
     Dosage: 5 MG, QD
     Route: 048
     Dates: start: 201308
  6. FOCALIN XR [Suspect]
     Active Substance: DEXMETHYLPHENIDATE HYDROCHLORIDE
     Dosage: 15 MG, QD
     Route: 048

REACTIONS (9)
  - Tic [Unknown]
  - Speech disorder [Recovering/Resolving]
  - Poverty of speech [Unknown]
  - Nervous system disorder [Unknown]
  - Malaise [Recovering/Resolving]
  - Tourette^s disorder [Unknown]
  - Dysphemia [Unknown]
  - Abnormal behaviour [Unknown]
  - Chest discomfort [Recovering/Resolving]
